FAERS Safety Report 26121266 (Version 1)
Quarter: 2025Q4

REPORT INFORMATION
  Report Type: Spontaneous
  Country: GB (occurrence: GB)
  Receive Date: 20251204
  Receipt Date: 20251204
  Transmission Date: 20260117
  Serious: Yes (Other)
  Sender: TORRENT PHARMA INC.
  Company Number: None

PATIENT
  Age: 78 Year
  Sex: Female
  Weight: 54 kg

DRUGS (9)
  1. LOSARTAN [Suspect]
     Active Substance: LOSARTAN
     Indication: Product used for unknown indication
     Dosage: 50MG/5ML
     Route: 065
     Dates: start: 20251101
  2. ATORVASTATIN [Concomitant]
     Active Substance: ATORVASTATIN
     Indication: Product used for unknown indication
     Dosage: ONE TO BE TAKEN EACH NIGHT
     Route: 065
     Dates: start: 20250205
  3. CALCIPOTRIENE [Concomitant]
     Active Substance: CALCIPOTRIENE
     Indication: Product used for unknown indication
     Dosage: APPLY ONCE DAILY FOR UP TO 2 WEEKS A MONTH AS R...
     Route: 065
     Dates: start: 20250205
  4. CANDESARTAN [Concomitant]
     Active Substance: CANDESARTAN
     Indication: Product used for unknown indication
     Dosage: TAKE ONE TABLET ONCE DAILY
     Route: 065
     Dates: start: 20251124
  5. ISOPROPYL MYRISTATE\MINERAL OIL [Concomitant]
     Active Substance: ISOPROPYL MYRISTATE\MINERAL OIL
     Indication: Product used for unknown indication
     Dosage: AS DIR
     Route: 065
     Dates: start: 20250205
  6. INDAPAMIDE [Concomitant]
     Active Substance: INDAPAMIDE
     Indication: Product used for unknown indication
     Dosage: TAKE ONE TABLET EACH MORNING
     Route: 065
     Dates: start: 20250917
  7. LERCANIDIPINE HYDROCHLORIDE [Concomitant]
     Active Substance: LERCANIDIPINE HYDROCHLORIDE
     Indication: Product used for unknown indication
     Dosage: TAKE ONE DAILY
     Route: 065
     Dates: start: 20250812
  8. OXYBUTYNIN [Concomitant]
     Active Substance: OXYBUTYNIN
     Indication: Product used for unknown indication
     Dosage: TAKE ONE TABLET TWICE A DAY TO HELP URINARY SYM...
     Route: 065
     Dates: start: 20250205
  9. RAMIPRIL [Concomitant]
     Active Substance: RAMIPRIL
     Indication: Product used for unknown indication
     Dosage: TAKE ONE CAPSULE ONCE DAILY
     Route: 065
     Dates: start: 20250829, end: 20250917

REACTIONS (3)
  - Hallucination, visual [Recovering/Resolving]
  - Poor quality sleep [Recovering/Resolving]
  - Sleep disorder [Unknown]

NARRATIVE: CASE EVENT DATE: 20251124
